FAERS Safety Report 11984999 (Version 1)
Quarter: 2016Q1

REPORT INFORMATION
  Report Type: Report from Study
  Country: JP (occurrence: JP)
  Receive Date: 20160201
  Receipt Date: 20160201
  Transmission Date: 20160526
  Serious: Yes (Hospitalization, Other)
  Sender: FDA-Public Use
  Company Number: JP-REGENERON PHARMACEUTICALS, INC.-2016-11001

PATIENT

DRUGS (2)
  1. EYLEA [Suspect]
     Active Substance: AFLIBERCEPT
     Indication: NEOVASCULAR AGE-RELATED MACULAR DEGENERATION
     Dosage: , OS2 MG, ONCE
     Route: 031
     Dates: start: 20150210, end: 20150210
  2. EYLEA [Suspect]
     Active Substance: AFLIBERCEPT
     Indication: CHOROIDAL NEOVASCULARISATION
     Dosage: 2 MG, ONCE, OS
     Route: 031
     Dates: start: 20150310, end: 20150310

REACTIONS (1)
  - Macular hole [Recovering/Resolving]

NARRATIVE: CASE EVENT DATE: 20150310
